FAERS Safety Report 5017005-2 (Version None)
Quarter: 2006Q2

REPORT INFORMATION
  Report Type: 
  Country: None (occurrence: None)
  Receive Date: 20060526
  Receipt Date: 20060516
  Transmission Date: 20061013
  Serious: Yes (Life-Threatening, Hospitalization, Other)
  Sender: FDA-Public Use
  Company Number: US200604002477

PATIENT
  Age: 85 Year
  Sex: Female
  Weight: 63.5 kg

DRUGS (8)
  1. CYMBALTA [Suspect]
     Indication: NEUROPATHY PERIPHERAL
     Dosage: 30 MG, DAILY (1/D),
     Dates: start: 20050401, end: 20060410
  2. CYMBALTA [Suspect]
     Indication: PAIN
     Dosage: 30 MG, DAILY (1/D),
     Dates: start: 20050401, end: 20060410
  3. XANAX /USA/ (ALPRAZOLAM) [Concomitant]
  4. PERCOCET-5 (ACETYLSALICYLIC ACID, OXYCODONE HYDROCHLORIDE, OXYCODONE T [Concomitant]
  5. AVAPRO [Concomitant]
  6. POTASSIUM CHLORIDE [Concomitant]
  7. LASIX [Concomitant]
  8. NEURONTIN [Concomitant]

REACTIONS (9)
  - AGITATION [None]
  - APHASIA [None]
  - FLUID INTAKE REDUCED [None]
  - HEPATIC ENCEPHALOPATHY [None]
  - HEPATITIS [None]
  - IRRITABILITY [None]
  - MENTAL STATUS CHANGES [None]
  - PLEURAL EFFUSION [None]
  - RENAL FAILURE [None]
